FAERS Safety Report 13537019 (Version 1)
Quarter: 2017Q2

REPORT INFORMATION
  Report Type: Spontaneous
  Country: GB (occurrence: GB)
  Receive Date: 20170511
  Receipt Date: 20170511
  Transmission Date: 20170830
  Serious: Yes (Other)
  Sender: FDA-Public Use
  Company Number: GB-MYLANLABS-2017M1027948

PATIENT

DRUGS (10)
  1. ZOLMITRIPTAN. [Concomitant]
     Active Substance: ZOLMITRIPTAN
     Indication: MIGRAINE
     Dosage: TAKE ONE OR TWO AT START OF MIGRAINE
     Dates: start: 20160606, end: 20170222
  2. NAPROXEN. [Concomitant]
     Active Substance: NAPROXEN
     Dosage: UNK
  3. CITALOPRAM [Suspect]
     Active Substance: CITALOPRAM HYDROBROMIDE
     Dosage: UNK
     Dates: start: 20170322
  4. DIPROBASE                          /01210201/ [Concomitant]
     Dates: start: 20150430
  5. IBUPROFEN. [Concomitant]
     Active Substance: IBUPROFEN
     Indication: PAIN
     Dosage: 1 DF, TID
     Dates: start: 20160818, end: 20170210
  6. AMOXICILLIN. [Concomitant]
     Active Substance: AMOXICILLIN
     Dosage: 1 DF, TID
     Dates: start: 20170425
  7. DERMOL                             /01330701/ [Concomitant]
     Dosage: USE AS DIRECTED
     Dates: start: 20150430
  8. DESOGESTREL [Concomitant]
     Active Substance: DESOGESTREL
     Indication: CONTRACEPTION
     Dosage: 1 DF, QD
     Dates: start: 20170322
  9. OMEPRAZOLE. [Concomitant]
     Active Substance: OMEPRAZOLE
     Indication: PROPHYLAXIS AGAINST GASTROINTESTINAL ULCER
     Dosage: 1 DF, QD
     Dates: start: 20160606, end: 20170222
  10. SERTRALINE [Concomitant]
     Active Substance: SERTRALINE HYDROCHLORIDE
     Dosage: EVERY OTHER NIGHT
     Dates: start: 20170210, end: 20170407

REACTIONS (1)
  - Polymenorrhagia [Not Recovered/Not Resolved]

NARRATIVE: CASE EVENT DATE: 20170426
